FAERS Safety Report 13707186 (Version 2)
Quarter: 2017Q3

REPORT INFORMATION
  Report Type: Report from Study
  Country: BR (occurrence: BR)
  Receive Date: 20170630
  Receipt Date: 20170706
  Transmission Date: 20171127
  Serious: Yes (Death)
  Sender: FDA-Public Use
  Company Number: BR-PFIZER INC-2017278207

PATIENT
  Age: 63 Year
  Sex: Male
  Weight: 70 kg

DRUGS (5)
  1. DOCETAXEL. [Suspect]
     Active Substance: DOCETAXEL
     Indication: NON-SMALL CELL LUNG CANCER
     Dosage: 131 MG, EVERY 3 WEEKS
     Route: 042
     Dates: start: 20161109
  2. DOCETAXEL. [Suspect]
     Active Substance: DOCETAXEL
     Dosage: 131 MG, EVERY 3 WEEKS
     Route: 042
  3. DOCETAXEL. [Suspect]
     Active Substance: DOCETAXEL
     Dosage: 131 MG, EVERY 3 WEEKS
     Route: 042
  4. DOCETAXEL. [Suspect]
     Active Substance: DOCETAXEL
     Dosage: 131 MG, EVERY 3 WEEKS
     Route: 042
     Dates: start: 20161130, end: 20161130
  5. DOCETAXEL. [Suspect]
     Active Substance: DOCETAXEL
     Dosage: 131 MG, EVERY 3 WEEKS
     Route: 042

REACTIONS (1)
  - Neoplasm progression [Fatal]

NARRATIVE: CASE EVENT DATE: 20170124
